FAERS Safety Report 6399675-X (Version None)
Quarter: 2009Q4

REPORT INFORMATION
  Report Type: 
  Country: None (occurrence: None)
  Receive Date: 20091014
  Receipt Date: 20091008
  Transmission Date: 20100525
  Serious: Yes (Life-Threatening)
  Sender: FDA-Public Use
  Company Number: JP-ASTRAZENECA-2009SE06353

PATIENT
  Age: 70 Year
  Sex: Male
  Weight: 60 kg

DRUGS (10)
  1. CASODEX [Suspect]
     Indication: PROSTATE CANCER
     Route: 048
     Dates: start: 20090618, end: 20090710
  2. CASODEX [Suspect]
     Route: 048
     Dates: start: 20090714, end: 20090722
  3. ZOLADEX [Suspect]
     Indication: PROSTATE CANCER
     Route: 058
     Dates: start: 20090702, end: 20090702
  4. CRESTOR [Concomitant]
     Indication: DYSLIPIDAEMIA
     Route: 048
  5. BLOPRESS [Concomitant]
     Indication: HYPERTENSION
     Route: 048
  6. BASEN OD [Concomitant]
     Indication: DIABETES MELLITUS
     Route: 048
  7. CONIEL [Concomitant]
     Indication: HYPERTENSION
     Route: 048
  8. NITOROL R [Concomitant]
     Indication: ANGINA PECTORIS
     Route: 048
  9. URIEF [Concomitant]
     Indication: BENIGN PROSTATIC HYPERPLASIA
     Route: 048
  10. EVIPROSTAT [Concomitant]
     Indication: BENIGN PROSTATIC HYPERPLASIA
     Route: 048

REACTIONS (5)
  - DIABETIC KETOACIDOSIS [None]
  - POLYDIPSIA [None]
  - POLYURIA [None]
  - THIRST [None]
  - WEIGHT DECREASED [None]
